FAERS Safety Report 13778461 (Version 2)
Quarter: 2017Q3

REPORT INFORMATION
  Report Type: Report from Study
  Country: US (occurrence: US)
  Receive Date: 20170721
  Receipt Date: 20170728
  Transmission Date: 20171127
  Serious: No
  Sender: FDA-Public Use
  Company Number: US-GILEAD-2017-0284293

PATIENT
  Age: 2 Year
  Sex: Female
  Weight: 12.19 kg

DRUGS (8)
  1. AMBRISENTAN [Suspect]
     Active Substance: AMBRISENTAN
     Indication: BRONCHOPULMONARY DYSPLASIA
  2. POLY VI SOL                        /00067501/ [Concomitant]
  3. REVATIO [Concomitant]
     Active Substance: SILDENAFIL CITRATE
  4. KEPPRA [Concomitant]
     Active Substance: LEVETIRACETAM
  5. AMBRISENTAN [Suspect]
     Active Substance: AMBRISENTAN
     Indication: PULMONARY HYPERTENSION
  6. REMODULIN [Concomitant]
     Active Substance: TREPROSTINIL
  7. ALDACTAZIDE [Concomitant]
     Active Substance: HYDROCHLOROTHIAZIDE\SPIRONOLACTONE
  8. AMBRISENTAN [Suspect]
     Active Substance: AMBRISENTAN
     Indication: HEART DISEASE CONGENITAL
     Dosage: 2.5 MG, QD
     Route: 033

REACTIONS (1)
  - Off label use [Not Recovered/Not Resolved]
